FAERS Safety Report 8596384-3 (Version None)
Quarter: 2012Q3

REPORT INFORMATION
  Report Type: 
  Country: None (occurrence: None)
  Receive Date: 20120815
  Receipt Date: 20120801
  Transmission Date: 20120928
  Serious: Yes (Hospitalization)
  Sender: FDA-Public Use
  Company Number: FR-PFIZER INC-2012187595

PATIENT
  Age: 78 Year
  Sex: Male

DRUGS (9)
  1. LYRICA [Suspect]
     Indication: NEURALGIA
     Dosage: 100 MG, 2X/DAY
     Route: 048
     Dates: end: 20120528
  2. LYRICA [Suspect]
     Dosage: 150 MG, 2X/DAY
     Route: 048
     Dates: end: 20120531
  3. ACETAMINOPHEN [Concomitant]
     Route: 048
  4. ATROVENT [Concomitant]
     Dosage: UNK
     Route: 055
  5. OLMESARTAN MEDOXOMIL [Suspect]
     Indication: HYPERTENSION
     Dosage: 40 MG, 1X/DAY
     Route: 048
  6. RASILEZ [Suspect]
     Indication: HYPERTENSION
     Dosage: 150 MG, 1X/DAY
     Route: 048
     Dates: end: 20120531
  7. PAROEX [Concomitant]
     Dosage: UNK
  8. BRICANYL [Concomitant]
     Dosage: UNK
     Route: 055
  9. ASPIRIN [Concomitant]
     Dosage: UNK
     Route: 048

REACTIONS (4)
  - MALAISE [None]
  - DIZZINESS [None]
  - ORTHOSTATIC HYPOTENSION [None]
  - VISION BLURRED [None]
